FAERS Safety Report 4522218-X (Version None)
Quarter: 2004Q4

REPORT INFORMATION
  Report Type: 
  Country: None (occurrence: None)
  Receive Date: 20041207
  Receipt Date: 20041123
  Transmission Date: 20050328
  Serious: Yes (Hospitalization, Other)
  Sender: FDA-Public Use
  Company Number: USA041184506

PATIENT
  Age: 53 Year
  Sex: Male

DRUGS (2)
  1. HUMULIN N [Suspect]
  2. HUMULIN R [Suspect]

REACTIONS (4)
  - CARDIAC FAILURE [None]
  - HYPERTENSION [None]
  - PERIPHERAL OCCLUSIVE DISEASE [None]
  - TOE AMPUTATION [None]
